FAERS Safety Report 17407366 (Version 2)
Quarter: 2020Q1

REPORT INFORMATION
  Report Type: Spontaneous
  Country: US (occurrence: US)
  Receive Date: 20200212
  Receipt Date: 20200304
  Transmission Date: 20200409
  Serious: Yes (Other)
  Sender: FDA-Public Use
  Company Number: US-GLENMARK PHARMACEUTICALS-2020GMK045977

PATIENT

DRUGS (2)
  1. RANITIDINE TABLETS USP, 300 MG [Suspect]
     Active Substance: RANITIDINE HYDROCHLORIDE
     Indication: PRODUCT USED FOR UNKNOWN INDICATION
     Dosage: 300 MG, HS (AT BEDTIME)
     Route: 065
  2. OMEPRAZOLE. [Concomitant]
     Active Substance: OMEPRAZOLE
     Indication: PRODUCT USED FOR UNKNOWN INDICATION
     Dosage: UNK, AT DAY TIME
     Route: 065

REACTIONS (6)
  - Polyp [Unknown]
  - Recalled product administered [Unknown]
  - Barrett^s oesophagus [Unknown]
  - Adverse event [Unknown]
  - Neoplasm malignant [Unknown]
  - Tremor [Unknown]
